FAERS Safety Report 5168502-0 (Version None)
Quarter: 2006Q4

REPORT INFORMATION
  Report Type: 
  Country: None (occurrence: None)
  Receive Date: 20061201
  Receipt Date: 20061121
  Transmission Date: 20070319
  Serious: Yes (Death, Hospitalization)
  Sender: FDA-Public Use
  Company Number: 2006127803

PATIENT
  Age: 59 Year
  Sex: Male

DRUGS (6)
  1. REVATIO [Suspect]
     Indication: PULMONARY HYPERTENSION
     Dosage: 60 MG (20 MG, 3 IN 1 D), ORAL
     Route: 048
     Dates: start: 20060914, end: 20061007
  2. DIGOXIN [Concomitant]
  3. MARCUMAR [Concomitant]
  4. LASIX [Concomitant]
  5. PHENYTOIN [Concomitant]
  6. CLONAZEPAM [Concomitant]

REACTIONS (4)
  - CARDIOGENIC SHOCK [None]
  - CONDITION AGGRAVATED [None]
  - DYSPNOEA [None]
  - SWELLING [None]
